FAERS Safety Report 17311554 (Version 1)
Quarter: 2020Q1

REPORT INFORMATION
  Report Type: Spontaneous
  Country: US (occurrence: US)
  Receive Date: 20200123
  Receipt Date: 20200123
  Transmission Date: 20200409
  Serious: No
  Sender: FDA-Public Use
  Company Number: US-ROCHE-2341717

PATIENT
  Age: 58 Year
  Sex: Male

DRUGS (5)
  1. RIFAMPIN. [Concomitant]
     Active Substance: RIFAMPIN
     Indication: LATENT TUBERCULOSIS
     Route: 042
  2. METHYLPREDNISOLONE. [Concomitant]
     Active Substance: METHYLPREDNISOLONE
     Route: 042
  3. FLUOCINONIDE. [Concomitant]
     Active Substance: FLUOCINONIDE
     Route: 061
  4. RITUXIMAB. [Suspect]
     Active Substance: RITUXIMAB
     Indication: PEMPHIGUS
     Route: 041
  5. CEFAZOLIN [Concomitant]
     Active Substance: CEFAZOLIN
     Indication: BACTERAEMIA
     Route: 042

REACTIONS (1)
  - Pyrexia [Recovered/Resolved]
